FAERS Safety Report 21756085 (Version 7)
Quarter: 2024Q2

REPORT INFORMATION
  Report Type: Spontaneous
  Country: BR (occurrence: BR)
  Receive Date: 20221220
  Receipt Date: 20240529
  Transmission Date: 20240716
  Serious: Yes (Disabling)
  Sender: FDA-Public Use
  Company Number: BR-SA-SAC20221214000543

PATIENT

DRUGS (1)
  1. LARONIDASE [Suspect]
     Active Substance: LARONIDASE
     Indication: Mucopolysaccharidosis I
     Dosage: 10 DF, QOW
     Route: 042
     Dates: start: 20200413

REACTIONS (13)
  - Bedridden [Recovering/Resolving]
  - Loss of personal independence in daily activities [Unknown]
  - Illness [Unknown]
  - Disease progression [Unknown]
  - Inappropriate schedule of product administration [Unknown]
  - Scoliosis [Not Recovered/Not Resolved]
  - Vessel perforation [Unknown]
  - Administration site injury [Unknown]
  - Nasopharyngitis [Recovered/Resolved]
  - Poor venous access [Recovered/Resolved]
  - Fatigue [Recovered/Resolved]
  - Pain [Recovering/Resolving]
  - Asthenia [Recovering/Resolving]

NARRATIVE: CASE EVENT DATE: 20230101
